FAERS Safety Report 6373474-7 (Version None)
Quarter: 2009Q3

REPORT INFORMATION
  Report Type: 
  Country: None (occurrence: None)
  Receive Date: 20090924
  Receipt Date: 20090304
  Transmission Date: 20100115
  Serious: No
  Sender: FDA-Public Use
  Company Number: US-ASTRAZENECA-2009UW05936

PATIENT
  Sex: Female

DRUGS (3)
  1. SEROQUEL [Suspect]
     Indication: BIPOLAR I DISORDER
     Dosage: 50 MG ON DAY ONE, 100 MG ON DAY 2, AND 200 MG ON DAY THREE
     Route: 048
  2. ABILIFY [Concomitant]
  3. PRISTIQ [Concomitant]

REACTIONS (3)
  - DYSARTHRIA [None]
  - FACIAL PALSY [None]
  - FORMICATION [None]
